FAERS Safety Report 11057244 (Version 1)
Quarter: 2015Q2

REPORT INFORMATION
  Report Type: Spontaneous
  Country: US (occurrence: US)
  Receive Date: 20150422
  Receipt Date: 20150422
  Transmission Date: 20150821
  Serious: No
  Sender: FDA-Public Use
  Company Number: US-CELGENEUS-USA-2015034472

PATIENT
  Age: 72 Year
  Sex: Male
  Weight: 94.3 kg

DRUGS (2)
  1. THALOMID [Suspect]
     Active Substance: THALIDOMIDE
     Indication: PLASMA CELL MYELOMA
     Route: 048
     Dates: start: 20120813
  2. THALOMID [Suspect]
     Active Substance: THALIDOMIDE
     Route: 048
     Dates: start: 201208

REACTIONS (4)
  - Skin exfoliation [Unknown]
  - Erythema [Unknown]
  - Asthenia [Unknown]
  - Nail disorder [Unknown]

NARRATIVE: CASE EVENT DATE: 201503
